FAERS Safety Report 22025741 (Version 1)
Quarter: 2023Q1

REPORT INFORMATION
  Report Type: Spontaneous
  Country: US (occurrence: None)
  Receive Date: 20230223
  Receipt Date: 20230223
  Transmission Date: 20230418
  Serious: No
  Sender: FDA-Public Use
  Company Number: US-ROCHE-3158475

PATIENT
  Sex: Female
  Weight: 58.112 kg

DRUGS (4)
  1. XOLAIR [Suspect]
     Active Substance: OMALIZUMAB
     Indication: Urticaria
     Dosage: 2 SHOTS OF 150MG EACH;
     Route: 058
  2. ZYRTEC [Concomitant]
     Active Substance: CETIRIZINE HYDROCHLORIDE
     Dosage: AT NIGHT,
     Route: 048
     Dates: start: 2022
  3. PEPCID [Concomitant]
     Active Substance: FAMOTIDINE
     Dosage: YES
     Route: 048
     Dates: start: 2022
  4. ALLEGRA [Concomitant]
     Active Substance: FEXOFENADINE HYDROCHLORIDE
     Dosage: YES
     Route: 048

REACTIONS (2)
  - Urticaria [Not Recovered/Not Resolved]
  - Product storage error [Unknown]
